FAERS Safety Report 20143064 (Version 2)
Quarter: 2021Q4

REPORT INFORMATION
  Report Type: Spontaneous
  Country: JP (occurrence: JP)
  Receive Date: 20211202
  Receipt Date: 20211209
  Transmission Date: 20220303
  Serious: Yes (Other)
  Sender: FDA-Public Use
  Company Number: JP-MSD-M2021-28293

PATIENT
  Age: 70 Year
  Sex: Female

DRUGS (3)
  1. KEYTRUDA [Suspect]
     Active Substance: PEMBROLIZUMAB
     Indication: Triple negative breast cancer
     Dosage: 200 MILLIGRAM, Q3W
     Route: 041
     Dates: start: 20211115, end: 20211115
  2. GEMCITABINE HYDROCHLORIDE [Suspect]
     Active Substance: GEMCITABINE HYDROCHLORIDE
     Indication: Triple negative breast cancer
     Dosage: 1000 MILLIGRAM/SQ. METER, ADMINISTERED AT DAY 1 AND DAY 8 IN A 21-DAY CYCLE
     Route: 041
     Dates: start: 20211115, end: 20211115
  3. CARBOPLATIN [Suspect]
     Active Substance: CARBOPLATIN
     Indication: Triple negative breast cancer
     Dosage: AUC2
     Route: 041
     Dates: start: 20211115, end: 202111

REACTIONS (1)
  - Platelet count decreased [Recovered/Resolved]

NARRATIVE: CASE EVENT DATE: 20211122
